FAERS Safety Report 9768465 (Version 2)
Quarter: 2013Q4

REPORT INFORMATION
  Report Type: Spontaneous
  Country: JP (occurrence: JP)
  Receive Date: 20131217
  Receipt Date: 20131217
  Transmission Date: 20140711
  Serious: Yes (Other)
  Sender: FDA-Public Use
  Company Number: JP-PFIZER INC-2013272335

PATIENT
  Age: 23 Year
  Sex: Female

DRUGS (8)
  1. TAKEPRON [Suspect]
     Indication: HERPES VIRUS INFECTION
     Dosage: UNK
     Route: 065
     Dates: start: 201010, end: 2011
  2. VORICONAZOLE [Suspect]
     Dosage: UNK
     Route: 065
     Dates: start: 2011, end: 2011
  3. ACICLOVIR [Interacting]
     Indication: HERPES ZOSTER
     Dosage: UNK
     Route: 065
     Dates: start: 201010, end: 201011
  4. ACICLOVIR [Interacting]
     Indication: HERPES VIRUS INFECTION
     Dosage: 750 MG, DAILY
     Route: 042
     Dates: end: 2011
  5. ACICLOVIR [Interacting]
     Indication: PROPHYLAXIS
     Dosage: 200 MG, DAILY
     Route: 048
     Dates: start: 2011, end: 2011
  6. TACROLIMUS [Suspect]
     Indication: HERPES VIRUS INFECTION
     Dosage: UNK
     Route: 065
     Dates: start: 201010, end: 2011
  7. REBAMIPIDE [Suspect]
     Indication: HERPES VIRUS INFECTION
     Dosage: UNK
     Route: 048
     Dates: end: 2011
  8. PREDNISOLONE [Concomitant]
     Indication: GRAFT VERSUS HOST DISEASE
     Dosage: 1 MG/KG
     Dates: start: 2010

REACTIONS (2)
  - Drug-induced liver injury [Recovered/Resolved]
  - Drug interaction [Unknown]
